FAERS Safety Report 16937543 (Version 1)
Quarter: 2019Q4

REPORT INFORMATION
  Report Type: Report from Study
  Country: BR (occurrence: BR)
  Receive Date: 20191018
  Receipt Date: 20191018
  Transmission Date: 20200122
  Serious: Yes (Other)
  Sender: FDA-Public Use
  Company Number: ALCN2015BR001811

PATIENT
  Age: 60 Year
  Sex: Male

DRUGS (2)
  1. TRAVATAN [Suspect]
     Active Substance: TRAVOPROST
     Indication: GLAUCOMA
     Dosage: 1 DRP (EACH EYE), QD (BY THE NIGHT)
     Route: 047
     Dates: end: 20191009
  2. DUOTRAVATAN [BAC] [Suspect]
     Active Substance: TIMOLOL MALEATE\TRAVOPROST
     Indication: INTRAOCULAR PRESSURE INCREASED
     Dosage: 1 GTT, QHS
     Route: 031
     Dates: start: 201501, end: 201502

REACTIONS (6)
  - Eye swelling [Recovering/Resolving]
  - Vision blurred [Recovered/Resolved]
  - Vision blurred [Recovering/Resolving]
  - Corneal disorder [Not Recovered/Not Resolved]
  - Drug ineffective [Recovered/Resolved]
  - Wrong technique in product usage process [Unknown]

NARRATIVE: CASE EVENT DATE: 20191009
